FAERS Safety Report 13796191 (Version 1)
Quarter: 2017Q3

REPORT INFORMATION
  Report Type: Spontaneous
  Country: US (occurrence: US)
  Receive Date: 20170726
  Receipt Date: 20170726
  Transmission Date: 20171127
  Serious: No
  Sender: FDA-Public Use
  Company Number: US-SUNOVION-2017SUN003257

PATIENT
  Sex: Female

DRUGS (1)
  1. LUNESTA [Suspect]
     Active Substance: ESZOPICLONE
     Dosage: UNK UNK, QD
     Route: 048

REACTIONS (1)
  - Dysgeusia [Unknown]
